FAERS Safety Report 9983285 (Version 1)
Quarter: 2014Q1

REPORT INFORMATION
  Report Type: Spontaneous
  Country: FR (occurrence: FR)
  Receive Date: 20140307
  Receipt Date: 20140307
  Transmission Date: 20141002
  Serious: Yes (Hospitalization)
  Sender: FDA-Public Use
  Company Number: FR-TEVA-467001ISR

PATIENT
  Age: 7 Year
  Sex: Male
  Weight: 25 kg

DRUGS (3)
  1. PREDNISOLONE [Suspect]
     Indication: EAR INFECTION
     Dosage: 20 MILLIGRAM DAILY;
     Route: 048
     Dates: start: 20131224, end: 20131227
  2. AMOXICILLINE [Suspect]
     Indication: EAR INFECTION
     Dosage: 3 DOSAGE FORMS DAILY;
     Route: 048
     Dates: start: 20131224, end: 20131227
  3. PANOTILE [Concomitant]
     Indication: EAR INFECTION
     Route: 001

REACTIONS (2)
  - Face oedema [Recovered/Resolved]
  - Urticaria [Recovered/Resolved]
